FAERS Safety Report 7934487-4 (Version None)
Quarter: 2011Q4

REPORT INFORMATION
  Report Type: 
  Country: None (occurrence: None)
  Receive Date: 20111122
  Receipt Date: 20111116
  Transmission Date: 20120403
  Serious: Yes (Other)
  Sender: FDA-Public Use
  Company Number: JP-GLAXOSMITHKLINE-B0763897A

PATIENT
  Sex: Male

DRUGS (1)
  1. PAXIL [Suspect]
     Indication: DEPRESSIVE SYMPTOM
     Dosage: 40MG PER DAY
     Route: 048

REACTIONS (6)
  - AGITATION [None]
  - AGGRESSION [None]
  - DRUG INEFFECTIVE [None]
  - SUICIDE ATTEMPT [None]
  - MOOD ALTERED [None]
  - ILL-DEFINED DISORDER [None]
